FAERS Safety Report 5062435-6 (Version None)
Quarter: 2006Q3

REPORT INFORMATION
  Report Type: 
  Country: None (occurrence: None)
  Receive Date: 20060721
  Receipt Date: 20060710
  Transmission Date: 20061208
  Serious: Yes (Hospitalization)
  Sender: FDA-Public Use
  Company Number: L06-CAN-02655-01

PATIENT
  Age: 50 Year
  Sex: Male

DRUGS (12)
  1. CARBAMAZEPINE [Suspect]
     Dosage: 400 MG TID
  2. CARBAMAZEPINE [Suspect]
     Dosage: 400 MG BID
  3. CARBAMAZEPINE [Suspect]
     Dosage: 400 MG TID
  4. CARBAMAZEPINE [Suspect]
     Dosage: 400 MG BID
  5. LOPINAVIR/ROTINAVIR [Suspect]
     Indication: HIV INFECTION
     Dosage: 3 CAPSULE BID
  6. NELFINAVIR [Suspect]
     Indication: HIV INFECTION
  7. NELFINAVIR [Suspect]
     Indication: HIV INFECTION
     Dosage: 1250 MG BID
  8. TENOFOVIR [Concomitant]
  9. LAMIVUDINE [Concomitant]
  10. CITALOPRAM HYDROBROMIDE [Concomitant]
  11. DAPSONE [Concomitant]
  12. FLUCONAZOLE [Concomitant]

REACTIONS (20)
  - ANAEMIA MACROCYTIC [None]
  - BALANCE DISORDER [None]
  - BLOOD PRESSURE DECREASED [None]
  - BONE MARROW TOXICITY [None]
  - CYTOMEGALOVIRUS ANTIBODY POSITIVE [None]
  - DERMATITIS [None]
  - DRUG INTERACTION [None]
  - DRUG LEVEL INCREASED [None]
  - DRUG TOXICITY [None]
  - DYSPHAGIA [None]
  - FATIGUE [None]
  - GAMMA-GLUTAMYLTRANSFERASE INCREASED [None]
  - HAEMORRHAGIC DISORDER [None]
  - HEART RATE DECREASED [None]
  - HYPOREFLEXIA [None]
  - IMMUNE RECONSTITUTION SYNDROME [None]
  - PARAESTHESIA [None]
  - RASH MACULO-PAPULAR [None]
  - SOMNOLENCE [None]
  - TREATMENT NONCOMPLIANCE [None]
